FAERS Safety Report 22202900 (Version 1)
Quarter: 2023Q2

REPORT INFORMATION
  Report Type: Spontaneous
  Country: US (occurrence: None)
  Receive Date: 20230412
  Receipt Date: 20230412
  Transmission Date: 20230722
  Serious: Yes (Other)
  Sender: FDA-Public Use
  Company Number: None

PATIENT
  Age: 42 Year
  Sex: Female
  Weight: 237.6 kg

DRUGS (2)
  1. MEROPENEM [Suspect]
     Active Substance: MEROPENEM
     Indication: Lymphoedema
     Dosage: FREQUENCY : 3 TIMES A DAY;?
     Route: 042
     Dates: start: 20230324, end: 20230403
  2. MEROPENEM [Suspect]
     Active Substance: MEROPENEM
     Indication: Wound

REACTIONS (3)
  - Rash [None]
  - Pruritus [None]
  - Infusion related hypersensitivity reaction [None]

NARRATIVE: CASE EVENT DATE: 20230331
